FAERS Safety Report 10463994 (Version 13)
Quarter: 2021Q4

REPORT INFORMATION
  Report Type: Spontaneous
  Country: US (occurrence: US)
  Receive Date: 20140919
  Receipt Date: 20211008
  Transmission Date: 20220303
  Serious: Yes (Hospitalization, Other)
  Sender: FDA-Public Use
  Company Number: US-PFIZER INC-2014258542

PATIENT
  Age: 76 Year
  Sex: Female
  Weight: 73 kg

DRUGS (28)
  1. XELJANZ [Suspect]
     Active Substance: TOFACITINIB CITRATE
     Indication: Rheumatoid arthritis
     Dosage: 5 MG, 2X/DAY
     Route: 048
     Dates: start: 2013
  2. XELJANZ [Suspect]
     Active Substance: TOFACITINIB CITRATE
     Dosage: 5 MG, 2X/DAY
     Route: 048
     Dates: start: 201405, end: 2014
  3. XELJANZ [Suspect]
     Active Substance: TOFACITINIB CITRATE
     Dosage: 5 MG, 2X/DAY
     Route: 048
     Dates: start: 201408, end: 20140908
  4. XELJANZ [Suspect]
     Active Substance: TOFACITINIB CITRATE
     Dosage: 5 MG, 2X/DAY
     Route: 048
     Dates: start: 20140915, end: 201505
  5. XELJANZ [Suspect]
     Active Substance: TOFACITINIB CITRATE
     Dosage: 5 MG, 2X/DAY
     Route: 048
     Dates: start: 201703
  6. XELJANZ [Suspect]
     Active Substance: TOFACITINIB CITRATE
     Dosage: 5 MG
     Dates: start: 20190221
  7. XELJANZ [Suspect]
     Active Substance: TOFACITINIB CITRATE
     Dosage: 10 MG
     Dates: start: 20210716
  8. SYNTHROID [Concomitant]
     Active Substance: LEVOTHYROXINE SODIUM
     Dosage: UNK,3 YEARS AGO
  9. BYSTOLIC [Concomitant]
     Active Substance: NEBIVOLOL HYDROCHLORIDE
     Dosage: UNK
     Dates: start: 20121206
  10. CHLORTHALIDONE [Concomitant]
     Active Substance: CHLORTHALIDONE
     Dosage: UNK
     Dates: end: 20150502
  11. CALCIUM\VITAMIN D [Concomitant]
     Active Substance: CALCIUM\VITAMIN D
     Dosage: UNK,LONG TIME AGO
  12. BIOTIN [Concomitant]
     Active Substance: BIOTIN
     Dosage: UNK,SEVERAL YEARS
  13. PYRIDOSTIGMINE BROMIDE [Concomitant]
     Active Substance: PYRIDOSTIGMINE BROMIDE
     Dosage: UNK
  14. MENEST [Concomitant]
     Active Substance: ESTROGENS, ESTERIFIED
     Dosage: UNK
     Dates: end: 20150606
  15. AZATHIOPRINE [Concomitant]
     Active Substance: AZATHIOPRINE
     Dosage: UNK,ONCE IN A WHILE
  16. SIMVASTATIN [Concomitant]
     Active Substance: SIMVASTATIN
     Dosage: UNK
  17. DILTIAZEM [Concomitant]
     Active Substance: DILTIAZEM
     Dosage: UNK
  18. SOTALOL [Concomitant]
     Active Substance: SOTALOL
     Dosage: UNK
  19. PRAVASTATIN [Concomitant]
     Active Substance: PRAVASTATIN
     Dosage: UNK,FOR SEVERAL YEARS
  20. LEVOTHYROXINE [Concomitant]
     Active Substance: LEVOTHYROXINE
     Dosage: UNK
  21. NITROFURANTOIN [Concomitant]
     Active Substance: NITROFURANTOIN
     Dosage: UNK
  22. ALEVE [Concomitant]
     Active Substance: NAPROXEN SODIUM
     Dosage: UNK,ONCE IN A WHILE
  23. TYLENOL [Concomitant]
     Active Substance: ACETAMINOPHEN
     Dosage: UNK,ONCE IN A WHILE
  24. PREDNISONE [Concomitant]
     Active Substance: PREDNISONE
     Dosage: 2 MG, DAILY
  25. IRON [Concomitant]
     Active Substance: IRON
     Dosage: 1 DF, DAILY
  26. DIGOXIN [Concomitant]
     Active Substance: DIGOXIN
     Dosage: UNK
     Dates: end: 20150617
  27. METHOTREXATE [Concomitant]
     Active Substance: METHOTREXATE
     Dosage: 7.5 MG, WEEKLY (3 TABLETS ONCE EVERY WEEK)
  28. FOLIC ACID [Concomitant]
     Active Substance: FOLIC ACID
     Dosage: 1 MG, DAILY (1 TABLET, EVERY DAY)

REACTIONS (12)
  - Rheumatoid arthritis [Not Recovered/Not Resolved]
  - Kidney infection [Recovered/Resolved]
  - Platelet count decreased [Not Recovered/Not Resolved]
  - Blood potassium decreased [Recovered/Resolved]
  - Urinary tract infection [Not Recovered/Not Resolved]
  - Peripheral swelling [Not Recovered/Not Resolved]
  - Atrial fibrillation [Unknown]
  - Dizziness [Unknown]
  - Muscular weakness [Unknown]
  - Weight increased [Unknown]
  - Sinusitis [Unknown]
  - Muscular weakness [Unknown]

NARRATIVE: CASE EVENT DATE: 20140801
